FAERS Safety Report 8762446 (Version 1)
Quarter: 2012Q4

REPORT INFORMATION
  Report Type: 
  Country: US (occurrence: US)
  Receive Date: 20120829
  Receipt Date: 20120829
  Transmission Date: 20130627
  Serious: No
  Sender: FDA-Public Use
  Company Number: US-PFIZER INC-2012210727

PATIENT
  Age: 41 Year
  Sex: Female
  Weight: 84.35 kg

DRUGS (3)
  1. LYRICA [Suspect]
     Indication: TRIGEMINAL NEURALGIA
     Dosage: 75 mg, 1x/day
     Route: 048
     Dates: start: 20120808, end: 201208
  2. LYRICA [Suspect]
     Dosage: 75 mg, 2x/day
     Route: 048
     Dates: start: 201208, end: 201208
  3. CLONAZEPAM [Concomitant]
     Indication: ANXIETY
     Dosage: 1 mg, UNK

REACTIONS (5)
  - Mood swings [Unknown]
  - Anger [Unknown]
  - Screaming [Unknown]
  - Crying [Unknown]
  - Feeling abnormal [Unknown]
